FAERS Safety Report 8062030-0 (Version None)
Quarter: 2012Q1

REPORT INFORMATION
  Report Type: 
  Country: None (occurrence: None)
  Receive Date: 20120118
  Receipt Date: 20120109
  Transmission Date: 20120608
  Serious: Yes (Death, Hospitalization)
  Sender: FDA-Public Use
  Company Number: JPI-P-002950

PATIENT
  Age: 36 Year
  Sex: Female

DRUGS (2)
  1. XYREM [Suspect]
     Indication: PRODUCT USED FOR UNKNOWN INDICATION
     Dosage: ORAL
     Route: 048
     Dates: end: 20080123
  2. MULTIPLE UNSPECIFIED MEDICATIONS [Concomitant]

REACTIONS (3)
  - KETOACIDOSIS [None]
  - DEHYDRATION [None]
  - VIRAL INFECTION [None]
